FAERS Safety Report 4614033-3 (Version None)
Quarter: 2005Q1

REPORT INFORMATION
  Report Type: 
  Country: None (occurrence: None)
  Receive Date: 20050316
  Receipt Date: 20050301
  Transmission Date: 20050727
  Serious: Yes (Other)
  Sender: FDA-Public Use
  Company Number: GBS050216691

PATIENT
  Age: 13 Year
  Sex: Male
  Weight: 45 kg

DRUGS (2)
  1. STRATTERA [Suspect]
     Indication: ATTENTION DEFICIT/HYPERACTIVITY DISORDER
     Dosage: 18 MG DAY
     Dates: start: 20050120, end: 20050121
  2. STRATTERA [Suspect]
     Indication: TIC
     Dosage: 18 MG DAY
     Dates: start: 20050120, end: 20050121

REACTIONS (3)
  - PETIT MAL EPILEPSY [None]
  - SIMPLE PARTIAL SEIZURES [None]
  - TOURETTE'S DISORDER [None]
